FAERS Safety Report 7379911-3 (Version None)
Quarter: 2011Q1

REPORT INFORMATION
  Report Type: 
  Country: None (occurrence: None)
  Receive Date: 20110329
  Receipt Date: 20110317
  Transmission Date: 20110831
  Serious: Yes (Hospitalization)
  Sender: FDA-Public Use
  Company Number: US-SANOFI-AVENTIS-2011SA011100

PATIENT
  Sex: Female
  Weight: 68.03 kg

DRUGS (6)
  1. COUMADIN [Concomitant]
     Indication: ATRIAL FIBRILLATION
  2. METOPROLOL [Concomitant]
     Indication: ATRIAL FIBRILLATION
  3. MULTAQ [Suspect]
     Indication: ATRIAL FIBRILLATION
     Route: 048
     Dates: start: 20100401, end: 20100430
  4. ASPIRIN [Concomitant]
  5. CRESTOR [Suspect]
     Route: 065
  6. ACCURETIC [Concomitant]
     Indication: HYPERTENSION
     Dosage: 10/12.5 MG

REACTIONS (11)
  - HEPATITIS [None]
  - MALAISE [None]
  - FATIGUE [None]
  - ANAEMIA [None]
  - BLOOD POTASSIUM DECREASED [None]
  - DECREASED APPETITE [None]
  - HAEMATURIA [None]
  - INTERNATIONAL NORMALISED RATIO INCREASED [None]
  - NAUSEA [None]
  - ABDOMINAL PAIN [None]
  - LIVER FUNCTION TEST ABNORMAL [None]
